FAERS Safety Report 7749467-1 (Version None)
Quarter: 2011Q3

REPORT INFORMATION
  Report Type: 
  Country: None (occurrence: None)
  Receive Date: 20110914
  Receipt Date: 20110905
  Transmission Date: 20111222
  Serious: Yes (Hospitalization, Disabling, Other)
  Sender: FDA-Public Use
  Company Number: SE-SANOFI-AVENTIS-2011SA011587

PATIENT
  Age: 76 Year
  Sex: Male
  Weight: 74 kg

DRUGS (4)
  1. METOPROLOL [Concomitant]
     Route: 048
  2. WARFARIN SODIUM [Concomitant]
     Indication: ATRIAL FIBRILLATION
     Route: 048
  3. FUROSEMIDE [Concomitant]
     Route: 048
  4. MULTAQ [Suspect]
     Indication: ATRIAL FIBRILLATION
     Route: 048
     Dates: start: 20101028, end: 20110221

REACTIONS (5)
  - MOTOR DYSFUNCTION [None]
  - POLYNEUROPATHY [None]
  - ATRIAL FIBRILLATION [None]
  - SENSORY LOSS [None]
  - PAIN IN EXTREMITY [None]
